FAERS Safety Report 12454121 (Version 2)
Quarter: 2016Q2

REPORT INFORMATION
  Report Type: Spontaneous
  Country: CA (occurrence: CA)
  Receive Date: 20160610
  Receipt Date: 20160622
  Transmission Date: 20160815
  Serious: Yes (Other)
  Sender: FDA-Public Use
  Company Number: CA-ROCHE-1771508

PATIENT
  Age: 69 Year
  Sex: Female

DRUGS (11)
  1. COSOPT [Concomitant]
     Active Substance: DORZOLAMIDE HYDROCHLORIDE\TIMOLOL MALEATE
  2. FUROSEMIDE. [Concomitant]
     Active Substance: FUROSEMIDE
  3. ENBREL [Suspect]
     Active Substance: ETANERCEPT
     Indication: PRODUCT USED FOR UNKNOWN INDICATION
     Route: 065
     Dates: start: 20130405, end: 20131011
  4. CIMZIA [Suspect]
     Active Substance: CERTOLIZUMAB PEGOL
     Indication: PRODUCT USED FOR UNKNOWN INDICATION
     Route: 065
  5. ACTEMRA [Suspect]
     Active Substance: TOCILIZUMAB
     Indication: PRODUCT USED FOR UNKNOWN INDICATION
     Route: 065
  6. VALSARTAN. [Concomitant]
     Active Substance: VALSARTAN
  7. ORENCIA [Suspect]
     Active Substance: ABATACEPT
     Indication: PRODUCT USED FOR UNKNOWN INDICATION
     Route: 065
  8. PLAQUENIL [Suspect]
     Active Substance: HYDROXYCHLOROQUINE SULFATE
     Indication: PRODUCT USED FOR UNKNOWN INDICATION
     Route: 065
  9. METHOTREXATE [Suspect]
     Active Substance: METHOTREXATE
     Indication: RHEUMATOID ARTHRITIS
     Route: 065
  10. ESTRADIOL. [Concomitant]
     Active Substance: ESTRADIOL
  11. XALATAN [Concomitant]
     Active Substance: LATANOPROST

REACTIONS (9)
  - Drug hypersensitivity [Unknown]
  - Drug ineffective [Unknown]
  - Synovitis [Unknown]
  - Drug intolerance [Unknown]
  - Treatment failure [Unknown]
  - Bronchitis [Unknown]
  - Diverticulitis [Unknown]
  - Colitis microscopic [Unknown]
  - Glaucoma [Unknown]

NARRATIVE: CASE EVENT DATE: 20160505
